FAERS Safety Report 25524219 (Version 2)
Quarter: 2025Q3

REPORT INFORMATION
  Report Type: Spontaneous
  Country: EU (occurrence: EU)
  Receive Date: 20250707
  Receipt Date: 20250716
  Transmission Date: 20251020
  Serious: Yes (Other)
  Sender: AUROBINDO
  Company Number: EU-AUROBINDO-AUR-APL-2025-003765

PATIENT
  Age: 68 Year
  Sex: Female

DRUGS (5)
  1. IMATINIB [Suspect]
     Active Substance: IMATINIB
     Indication: Chronic myeloid leukaemia
     Dosage: 400 MILLIGRAM, ONCE A DAY
     Route: 065
  2. ASCIMINIB [Suspect]
     Active Substance: ASCIMINIB
     Indication: Chronic myeloid leukaemia
     Dosage: 40 MILLIGRAM, TWO TIMES A DAY (80 MILLIGRAM ONCE A DAY)
     Route: 065
  3. NILOTINIB [Suspect]
     Active Substance: NILOTINIB
     Indication: Chronic myeloid leukaemia
     Dosage: 600 MILLIGRAM, ONCE A DAY (300 MG, BID)
     Route: 065
  4. NILOTINIB [Suspect]
     Active Substance: NILOTINIB
     Route: 065
  5. NILOTINIB [Suspect]
     Active Substance: NILOTINIB
     Dosage: 300 MILLIGRAM, TWO TIMES A DAY
     Route: 065

REACTIONS (10)
  - Thrombocytopenia [Unknown]
  - Therapeutic product effect incomplete [Unknown]
  - Oedema [Unknown]
  - Anaemia [Unknown]
  - Rash [Unknown]
  - Pruritus [Unknown]
  - Skin hyperpigmentation [Unknown]
  - Skin toxicity [Unknown]
  - Nail toxicity [Unknown]
  - Drug intolerance [Unknown]
